FAERS Safety Report 8954771 (Version 2)
Quarter: 2012Q4

REPORT INFORMATION
  Report Type: 
  Country: IT (occurrence: IT)
  Receive Date: 20121207
  Receipt Date: 20121219
  Transmission Date: 20130627
  Serious: Yes (Hospitalization)
  Sender: FDA-Public Use
  Company Number: IT-GLAXOSMITHKLINE-B0849215A

PATIENT
  Age: 52 Year
  Sex: Male

DRUGS (2)
  1. VOTRIENT [Suspect]
     Indication: RENAL CELL CARCINOMA
     Dosage: 800MG Per day
     Route: 065
     Dates: start: 20121107, end: 20121121
  2. ANTI-ARRYTHMIC [Concomitant]

REACTIONS (1)
  - Epilepsy [Recovered/Resolved]
